FAERS Safety Report 21685082 (Version 2)
Quarter: 2022Q4

REPORT INFORMATION
  Report Type: Spontaneous
  Country: RU (occurrence: RU)
  Receive Date: 20221206
  Receipt Date: 20221213
  Transmission Date: 20230112
  Serious: Yes (Life-Threatening, Hospitalization)
  Sender: FDA-Public Use
  Company Number: RU-AstraZeneca-2022A394033

PATIENT
  Sex: Female
  Weight: 2 kg

DRUGS (6)
  1. SYNAGIS [Suspect]
     Active Substance: PALIVIZUMAB
     Indication: Respiratory syncytial virus infection
     Dates: start: 20220405
  2. BUDESONIDE [Suspect]
     Active Substance: BUDESONIDE
     Indication: Bronchiolitis
     Dosage: 0.25 MG TO 2 TIMES A DAY
  3. BUDESONIDE [Suspect]
     Active Substance: BUDESONIDE
  4. IPRATROPIUM BROMIDE + FENOTEROL HYDROBROMIDE [Concomitant]
     Indication: Product used for unknown indication
     Dosage: 4 DROPS
  5. IPRATROPIUM BROMIDE + FENOTEROL HYDROBROMIDE [Concomitant]
     Dosage: 1 DROP/KG UP TO 4 TIMES A DAY
  6. AMOXICILLIN\CLAVULANATE POTASSIUM [Concomitant]
     Active Substance: AMOXICILLIN\CLAVULANATE POTASSIUM
     Indication: Product used for unknown indication

REACTIONS (2)
  - Respiratory syncytial virus bronchiolitis [Recovered/Resolved]
  - Off label use [Unknown]
